FAERS Safety Report 21706956 (Version 1)
Quarter: 2022Q4

REPORT INFORMATION
  Report Type: Spontaneous
  Country: US (occurrence: US)
  Receive Date: 20221209
  Receipt Date: 20221209
  Transmission Date: 20230113
  Serious: No
  Sender: FDA-Public Use
  Company Number: US-ALNYLAM PHARMACEUTICALS, INC.-ALN-2022-004365

PATIENT

DRUGS (1)
  1. OXLUMO [Suspect]
     Active Substance: LUMASIRAN
     Indication: Oxalosis
     Dosage: 9 MILLIGRAM/KILOGRAM, MONTHLY
     Route: 065

REACTIONS (2)
  - Drug ineffective [Unknown]
  - Prescribed overdose [Unknown]
